FAERS Safety Report 16795081 (Version 1)
Quarter: 2019Q3

REPORT INFORMATION
  Report Type: Spontaneous
  Country: US (occurrence: US)
  Receive Date: 20190721
  Receipt Date: 20190721
  Transmission Date: 20191005
  Serious: No
  Sender: FDA-Public Use
  Company Number: None

PATIENT
  Age: 62 Year
  Sex: Female

DRUGS (1)
  1. IBRANCE [Suspect]
     Active Substance: PALBOCICLIB
     Indication: NEOPLASM MALIGNANT
     Dosage: ?          OTHER FREQUENCY:QD 21 DAYS, ON AND 7 DAYS OFF
     Route: 048
     Dates: start: 201807

REACTIONS (2)
  - Nail disorder [None]
  - Onychoclasis [None]

NARRATIVE: CASE EVENT DATE: 201907
